FAERS Safety Report 6068375-8 (Version None)
Quarter: 2009Q1

REPORT INFORMATION
  Report Type: 
  Country: None (occurrence: None)
  Receive Date: 20090206
  Receipt Date: 20090129
  Transmission Date: 20090719
  Serious: Yes (Hospitalization)
  Sender: FDA-Public Use
  Company Number: IL-AMGEN-UK330903

PATIENT
  Age: 80 Year
  Sex: Female

DRUGS (5)
  1. NEULASTIM [Suspect]
     Indication: CHEMOTHERAPY
     Route: 058
     Dates: start: 20090101
  2. DOXORUBICIN HYDROCHLORIDE [Concomitant]
     Route: 065
     Dates: start: 20090101
  3. BLEOMYCIN SULFATE [Concomitant]
     Route: 065
     Dates: start: 20090101
  4. VINBLASTINE [Concomitant]
     Route: 065
     Dates: start: 20090101
  5. DACARBAZINE [Concomitant]
     Route: 065
     Dates: start: 20090101

REACTIONS (1)
  - PNEUMONITIS [None]
